FAERS Safety Report 6047970-6 (Version None)
Quarter: 2009Q1

REPORT INFORMATION
  Report Type: 
  Country: None (occurrence: None)
  Receive Date: 20090123
  Receipt Date: 20090114
  Transmission Date: 20090719
  Serious: Yes (Other)
  Sender: FDA-Public Use
  Company Number: PHHY2009BR01463

PATIENT
  Sex: Female
  Weight: 108 kg

DRUGS (3)
  1. FORADIL [Suspect]
     Indication: DYSPNOEA
     Dosage: 2-3 TIMES/DAY
  2. FORASEQ [Suspect]
     Indication: PNEUMONITIS
     Dosage: 1 CAPSULE OF EACH ACTIVE INGREDIENT IN THE MORNING AND AT NIGHT
  3. SPIRIVA [Concomitant]
     Indication: BRONCHITIS
     Dosage: UNK

REACTIONS (8)
  - BRONCHITIS [None]
  - DYSPNOEA [None]
  - GAIT DISTURBANCE [None]
  - LUNG NEOPLASM [None]
  - OVERWEIGHT [None]
  - PNEUMONIA [None]
  - SURGERY [None]
  - X-RAY ABNORMAL [None]
